FAERS Safety Report 7035657-2 (Version None)
Quarter: 2010Q4

REPORT INFORMATION
  Report Type: 
  Country: None (occurrence: None)
  Receive Date: 20101008
  Receipt Date: 20101005
  Transmission Date: 20110411
  Serious: Yes (Hospitalization)
  Sender: FDA-Public Use
  Company Number: US-MERCK-1007USA04006

PATIENT
  Age: 70 Year
  Sex: Male
  Weight: 86 kg

DRUGS (6)
  1. JANUVIA [Suspect]
     Indication: TYPE 2 DIABETES MELLITUS
     Route: 048
     Dates: start: 20091101, end: 20100101
  2. ERYTHROMYCIN [Suspect]
     Route: 065
  3. LEVEMIR [Concomitant]
     Route: 065
  4. CRESTOR [Concomitant]
     Route: 065
  5. SYNTHROID [Concomitant]
     Route: 065
  6. ALLOPURINOL [Concomitant]
     Route: 065

REACTIONS (2)
  - CYCLIC VOMITING SYNDROME [None]
  - PANCREATITIS [None]
